FAERS Safety Report 20742004 (Version 5)
Quarter: 2023Q1

REPORT INFORMATION
  Report Type: Other
  Country: DE (occurrence: DE)
  Receive Date: 20220423
  Receipt Date: 20230125
  Transmission Date: 20230417
  Serious: Yes (Hospitalization, Other)
  Sender: FDA-Public Use
  Company Number: DE-SA-2017SA226992

PATIENT
  Age: 41 Year
  Sex: Female

DRUGS (37)
  1. QUETIAPINE FUMARATE [Suspect]
     Active Substance: QUETIAPINE FUMARATE
     Indication: Bipolar disorder
     Dosage: UNK (50- 200 MILLIGRAM DAILY)
     Route: 065
  2. QUETIAPINE FUMARATE [Suspect]
     Active Substance: QUETIAPINE FUMARATE
     Dosage: UNK
     Route: 065
  3. QUETIAPINE FUMARATE [Suspect]
     Active Substance: QUETIAPINE FUMARATE
     Dosage: 200 MILLIGRAM
     Route: 065
  4. QUETIAPINE FUMARATE [Suspect]
     Active Substance: QUETIAPINE FUMARATE
     Dosage: UNK UNK, QD (50-100 MG DAILY)
     Route: 048
     Dates: start: 201310
  5. QUETIAPINE FUMARATE [Suspect]
     Active Substance: QUETIAPINE FUMARATE
     Dosage: UNK UNK, QD (50-0-0-100 MG)
     Route: 065
     Dates: start: 201310
  6. QUETIAPINE FUMARATE [Suspect]
     Active Substance: QUETIAPINE FUMARATE
     Dosage: UNK
     Route: 065
  7. LITHIUM [Suspect]
     Active Substance: LITHIUM
     Indication: Bipolar disorder
     Dosage: UNK
     Route: 065
  8. LITHIUM [Suspect]
     Active Substance: LITHIUM
     Dosage: UNK, QD (900- 2250 MG DAILY)
     Route: 048
  9. LITHIUM [Suspect]
     Active Substance: LITHIUM
     Dosage: UNK
     Route: 065
  10. LITHIUM [Suspect]
     Active Substance: LITHIUM
     Dosage: LOW DOSE
     Route: 065
  11. LITHIUM [Suspect]
     Active Substance: LITHIUM
     Dosage: 450- 0- 0- 675 MG
     Route: 065
  12. VALPROIC ACID [Suspect]
     Active Substance: VALPROIC ACID
     Indication: Bipolar disorder
     Dosage: UNK, QD
     Route: 048
  13. VALPROIC ACID [Suspect]
     Active Substance: VALPROIC ACID
     Dosage: 2300 MILLIGRAM, QD
     Route: 048
     Dates: start: 20131206, end: 20140221
  14. VALPROIC ACID [Suspect]
     Active Substance: VALPROIC ACID
     Dosage: 2300 MILLIGRAM, QD
     Route: 065
     Dates: start: 20140715, end: 20140725
  15. VALPROATE [Suspect]
     Active Substance: VALPROIC ACID
     Indication: Bipolar disorder
     Dosage: UNK
     Route: 048
  16. VALPROATE [Suspect]
     Active Substance: VALPROIC ACID
     Dosage: 1800 MILLIGRAM, QD
     Route: 048
     Dates: start: 201310
  17. VALPROATE [Suspect]
     Active Substance: VALPROIC ACID
     Dosage: 2300 MILLIGRAM, QD
     Route: 065
     Dates: start: 20140222, end: 20140714
  18. VALPROATE [Suspect]
     Active Substance: VALPROIC ACID
     Dosage: UNK (1300- 2500 MG DAILY)
     Route: 048
  19. VALPROATE [Suspect]
     Active Substance: VALPROIC ACID
     Dosage: UNK (1000- 0- 1000)
     Route: 065
     Dates: start: 20140520, end: 20140524
  20. VALPROATE [Suspect]
     Active Substance: VALPROIC ACID
     Dosage: UNK
     Route: 048
  21. VALPROATE [Suspect]
     Active Substance: VALPROIC ACID
     Dosage: UNK (300-0-0-1000 MG)
     Route: 048
  22. VALPROATE [Suspect]
     Active Substance: VALPROIC ACID
     Dosage: UNK (1000-0-0-1300 MG)
     Route: 048
     Dates: start: 20140221
  23. VALPROATE [Suspect]
     Active Substance: VALPROIC ACID
     Dosage: 2000 MG, QD
     Route: 048
     Dates: start: 20140627, end: 20140627
  24. VALPROATE [Suspect]
     Active Substance: VALPROIC ACID
     Dosage: 2300 MG, QD (PROLONGED-RELEASE TABLET )
     Route: 048
     Dates: start: 20131206, end: 20140221
  25. VALPROATE [Suspect]
     Active Substance: VALPROIC ACID
     Dosage: 2300 MG, QD (PROLONGED-RELEASE TABLET )
     Route: 048
     Dates: start: 20140715, end: 20140725
  26. INSULIN HUMAN [Concomitant]
     Active Substance: INSULIN HUMAN
     Indication: Gestational diabetes
     Dosage: 6 INTERNATIONAL UNIT, QD
     Route: 058
     Dates: start: 2014
  27. NOVORAPID [Concomitant]
     Active Substance: INSULIN ASPART
     Indication: Gestational diabetes
     Dosage: 5.5 INTERNATIONAL UNIT (THROUGHOUT THE DAY)
     Route: 058
     Dates: start: 2014
  28. LEVOTHYROXINE SODIUM [Concomitant]
     Active Substance: LEVOTHYROXINE SODIUM
     Indication: Product used for unknown indication
     Dosage: 75 MICROGRAM, QD
     Route: 065
  29. PANTOPRAZOLE [Concomitant]
     Active Substance: PANTOPRAZOLE
     Indication: Product used for unknown indication
     Dosage: 40 MILLIGRAM, QD
     Route: 065
  30. ARIPIPRAZOLE [Concomitant]
     Active Substance: ARIPIPRAZOLE
     Indication: Product used for unknown indication
     Dosage: 5 MILLIGRAM, QD
     Route: 065
  31. MIRTAZAPINE [Concomitant]
     Active Substance: MIRTAZAPINE
     Indication: Product used for unknown indication
     Dosage: 30 MILLIGRAM, QD (0-0-0-15MG)
     Route: 065
  32. MIRTAZAPINE [Concomitant]
     Active Substance: MIRTAZAPINE
     Dosage: 15 MILLIGRAM, QD (0-0-0-15MG)
     Route: 065
  33. MIRTAZAPINE [Concomitant]
     Active Substance: MIRTAZAPINE
     Dosage: 15 MILLIGRAM, QD (0-0-0-15MG)
     Route: 065
  34. CITALOPRAM [Concomitant]
     Active Substance: CITALOPRAM HYDROBROMIDE
     Indication: Product used for unknown indication
     Dosage: 20 MILLIGRAM, QD
     Route: 065
  35. AMLODIPINE [Concomitant]
     Active Substance: AMLODIPINE BESYLATE
     Indication: Product used for unknown indication
     Dosage: UNK (1-0-0-1 MG)
     Route: 065
  36. AMLODIPINE [Concomitant]
     Active Substance: AMLODIPINE BESYLATE
     Dosage: 5 MILLIGRAM, QD
     Route: 065
  37. LAMOTRIGINE [Concomitant]
     Active Substance: LAMOTRIGINE
     Indication: Product used for unknown indication
     Dosage: 100 MILLIGRAM, QD
     Route: 065

REACTIONS (26)
  - Hypertension [Unknown]
  - Bipolar I disorder [Unknown]
  - Bipolar disorder [Unknown]
  - Hypothyroidism [Unknown]
  - Exposure during pregnancy [Unknown]
  - Gestational diabetes [Unknown]
  - Polyhydramnios [Unknown]
  - Abdominal pain [Recovered/Resolved]
  - Diarrhoea [Unknown]
  - Gastric disorder [Unknown]
  - Sciatica [Unknown]
  - Blood glucose fluctuation [Unknown]
  - Blood glucose increased [Unknown]
  - Abdominal distension [Recovered/Resolved]
  - Constipation [Unknown]
  - Frequent bowel movements [Recovered/Resolved]
  - Obesity [Unknown]
  - Abdominal pain [Recovered/Resolved]
  - Adverse drug reaction [Unknown]
  - Mania [Unknown]
  - Abdominal distension [Unknown]
  - Sedation [Unknown]
  - Weight increased [Unknown]
  - Weight increased [Unknown]
  - Tremor [Unknown]
  - Live birth [Unknown]

NARRATIVE: CASE EVENT DATE: 20130101
